FAERS Safety Report 25079186 (Version 2)
Quarter: 2025Q1

REPORT INFORMATION
  Report Type: Report from Study
  Country: CA (occurrence: CA)
  Receive Date: 20250314
  Receipt Date: 20250331
  Transmission Date: 20250408
  Serious: Yes (Hospitalization, Other)
  Sender: DR REDDYS
  Company Number: CA-drreddys-CLI/CAN/23/0161671

PATIENT
  Age: 78 Year
  Sex: Female

DRUGS (4)
  1. ZOLEDRONIC ACID [Suspect]
     Active Substance: ZOLEDRONIC ACID
     Indication: Osteoporosis
     Dosage: 5MG/100ML
     Route: 065
     Dates: start: 20200123
  2. ZOLEDRONIC ACID [Suspect]
     Active Substance: ZOLEDRONIC ACID
     Dosage: 5MG/100ML
     Route: 065
     Dates: start: 20210104
  3. ZOLEDRONIC ACID [Suspect]
     Active Substance: ZOLEDRONIC ACID
     Dosage: 5MG/100ML
     Route: 065
     Dates: start: 20230216
  4. ZOLEDRONIC ACID [Suspect]
     Active Substance: ZOLEDRONIC ACID
     Dosage: 5MG/100ML
     Route: 065
     Dates: start: 20240221

REACTIONS (2)
  - Pelvic fracture [Recovering/Resolving]
  - Cardiac disorder [Unknown]
